FAERS Safety Report 17588819 (Version 2)
Quarter: 2020Q2

REPORT INFORMATION
  Report Type: Report from Study
  Country: None (occurrence: US)
  Receive Date: 20200327
  Receipt Date: 20200424
  Transmission Date: 20200713
  Serious: Yes (Other)
  Sender: FDA-Public Use
  Company Number: US-ABBVIE-20K-163-3289619-00

PATIENT
  Sex: Male

DRUGS (1)
  1. HUMIRA [Suspect]
     Active Substance: ADALIMUMAB
     Indication: RHEUMATOID ARTHRITIS
     Dosage: CITRATE FREE
     Route: 058
     Dates: end: 202004

REACTIONS (10)
  - Post procedural oedema [Not Recovered/Not Resolved]
  - Osteoarthritis [Not Recovered/Not Resolved]
  - General physical health deterioration [Not Recovered/Not Resolved]
  - Visual impairment [Recovered/Resolved]
  - Hypoaesthesia [Not Recovered/Not Resolved]
  - Atrial fibrillation [Unknown]
  - Constipation [Unknown]
  - Wheezing [Recovered/Resolved]
  - Lymphoma [Not Recovered/Not Resolved]
  - Impaired work ability [Not Recovered/Not Resolved]

NARRATIVE: CASE EVENT DATE: 2018
